FAERS Safety Report 19413802 (Version 1)
Quarter: 2021Q2

REPORT INFORMATION
  Report Type: Spontaneous
  Country: TW (occurrence: TW)
  Receive Date: 20210614
  Receipt Date: 20210614
  Transmission Date: 20210717
  Serious: Yes (Other)
  Sender: FDA-Public Use
  Company Number: TW-LUPIN PHARMACEUTICALS INC.-2021-09200

PATIENT
  Age: 31 Year
  Sex: Female

DRUGS (6)
  1. HYALURONIDASE [Suspect]
     Active Substance: HYALURONIDASE
     Indication: BLINDNESS
     Dosage: UNK
     Route: 065
  2. BRIMONIDINE [Suspect]
     Active Substance: BRIMONIDINE TARTRATE
     Indication: INTRAOCULAR PRESSURE INCREASED
     Dosage: 0.15 PERCENT, TID
     Route: 061
  3. METHYLPREDNISOLONE. [Suspect]
     Active Substance: METHYLPREDNISOLONE
     Indication: ANTIINFLAMMATORY THERAPY
     Dosage: 250 MILLIGRAM, EVERY 6 HOURS FOR IN THE FIRST 3 DAYS, AFTER WHICH IT WAS TAPERED
     Route: 042
  4. ASPIRIN. [Suspect]
     Active Substance: ASPIRIN
     Indication: ANTIINFLAMMATORY THERAPY
     Dosage: 100 MILLIGRAM, QD
     Route: 048
  5. MANNITOL. [Suspect]
     Active Substance: MANNITOL
     Indication: RETINAL ARTERY OCCLUSION
     Dosage: 300 MILLILITER
     Route: 042
  6. ACETAZOLAMIDE. [Suspect]
     Active Substance: ACETAZOLAMIDE
     Indication: INTRAOCULAR PRESSURE INCREASED
     Dosage: 250 MILLIGRAM, QID
     Route: 048

REACTIONS (1)
  - Drug ineffective [Unknown]
